FAERS Safety Report 20049057 (Version 1)
Quarter: 2021Q4

REPORT INFORMATION
  Report Type: Spontaneous
  Country: AR (occurrence: AR)
  Receive Date: 20211109
  Receipt Date: 20211109
  Transmission Date: 20220303
  Serious: Yes (Death)
  Sender: FDA-Public Use
  Company Number: AR-PFIZER INC-202101151501

PATIENT
  Age: 67 Year
  Sex: Female

DRUGS (5)
  1. AROMASIN [Suspect]
     Active Substance: EXEMESTANE
     Indication: Breast cancer metastatic
     Dosage: 25 MG, DAILY
     Dates: start: 20210525
  2. AROMASIN [Suspect]
     Active Substance: EXEMESTANE
     Dosage: 25 MG, DAILY
     Dates: start: 20210525
  3. EXEMESTANE [Suspect]
     Active Substance: EXEMESTANE
     Dosage: UNK
  4. AFINITOR [Concomitant]
     Active Substance: EVEROLIMUS
     Dosage: UNK
  5. INSULIN NOS [Concomitant]
     Active Substance: INSULIN NOS
     Dosage: UNK

REACTIONS (2)
  - Neoplasm progression [Fatal]
  - Product dispensing error [Unknown]
